FAERS Safety Report 8137648-7 (Version None)
Quarter: 2012Q1

REPORT INFORMATION
  Report Type: 
  Country: None (occurrence: None)
  Receive Date: 20120215
  Receipt Date: 20120209
  Transmission Date: 20120608
  Serious: No
  Sender: FDA-Public Use
  Company Number: US-PFIZER INC-2012038147

PATIENT
  Sex: Female
  Weight: 95.238 kg

DRUGS (4)
  1. IBUPROFEN [Suspect]
     Indication: LIMB DISCOMFORT
     Dosage: UNK
  2. ACETAMINOPHEN [Suspect]
     Indication: LIMB DISCOMFORT
  3. ULTRAM [Suspect]
     Indication: LIMB DISCOMFORT
  4. LORTAB [Suspect]
     Indication: LIMB DISCOMFORT

REACTIONS (4)
  - PAIN IN EXTREMITY [None]
  - DYSSTASIA [None]
  - DRUG INEFFECTIVE [None]
  - ABASIA [None]
